FAERS Safety Report 8943776 (Version 2)
Quarter: 2013Q1

REPORT INFORMATION
  Report Type: Spontaneous
  Country: FR (occurrence: FR)
  Receive Date: 20121203
  Receipt Date: 20130110
  Transmission Date: 20140127
  Serious: Yes (Death)
  Sender: FDA-Public Use
  Company Number: FR-GLAXOSMITHKLINE-B0846229A

PATIENT
  Age: 84 Year
  Sex: Female

DRUGS (4)
  1. ARIXTRA [Suspect]
     Indication: THROMBOSIS PROPHYLAXIS
     Route: 058
     Dates: start: 20121012, end: 20121025
  2. FLECTOR [Concomitant]
     Indication: BACK PAIN
     Dosage: 50MG THREE TIMES PER DAY
     Route: 048
     Dates: start: 20121015, end: 20121024
  3. COVERSYL [Concomitant]
     Indication: HYPERTENSION
     Dosage: 10MG PER DAY
     Route: 048
     Dates: start: 20121016, end: 20121025
  4. BIPRETERAX [Concomitant]
     Indication: HYPERTENSION
     Route: 048
     Dates: end: 20121015

REACTIONS (5)
  - Retroperitoneal haemorrhage [Fatal]
  - Muscle haemorrhage [Fatal]
  - Anaemia [Fatal]
  - Anal haemorrhage [Recovered/Resolved]
  - Back pain [Fatal]
